FAERS Safety Report 4926059-0 (Version None)
Quarter: 2006Q1

REPORT INFORMATION
  Report Type: 
  Country: None (occurrence: None)
  Receive Date: 20060228
  Receipt Date: 20050802
  Transmission Date: 20060701
  Serious: No
  Sender: FDA-Public Use
  Company Number: 2005-BP-11256RO

PATIENT
  Age: 69 Year
  Sex: Female

DRUGS (5)
  1. LAMICTAL [Suspect]
     Indication: DEPRESSION
     Dosage: 150MG PER DAY
     Route: 048
  2. LITHIUM CARBONATE [Suspect]
     Dosage: 300MG PER DAY
     Route: 048
  3. PROVIGIL [Concomitant]
     Dosage: 200MG PER DAY
     Route: 048
  4. FLUOXETINE HCL [Concomitant]
     Indication: DEPRESSION
     Route: 048
  5. SYNTHROID [Concomitant]
     Indication: HYPOTHYROIDISM
     Dosage: .125MG PER DAY
     Route: 048

REACTIONS (1)
  - ALOPECIA [None]
